FAERS Safety Report 9458278 (Version 1)
Quarter: 2013Q3

REPORT INFORMATION
  Report Type: Report from Study
  Country: DE (occurrence: DE)
  Receive Date: 20130814
  Receipt Date: 20130814
  Transmission Date: 20140515
  Serious: Yes (Hospitalization, Other)
  Sender: FDA-Public Use
  Company Number: DE-SANOFI-AVENTIS-2013SA080241

PATIENT
  Age: 64 Year
  Sex: Male
  Weight: 70 kg

DRUGS (7)
  1. MULTAQ [Suspect]
     Indication: ATRIAL FIBRILLATION
     Route: 065
     Dates: start: 201104, end: 201305
  2. BETA BLOCKING AGENTS [Concomitant]
     Dates: start: 200303
  3. PLATELET AGGREGATION INHIBITORS [Concomitant]
     Indication: THROMBOSIS PROPHYLAXIS
  4. ACETYLSALICYLIC ACID [Concomitant]
     Dosage: UNIT CONT:100
  5. BISOPROLOL [Concomitant]
  6. PANTOPRAZOLE [Concomitant]
  7. PROTEIN C (COAGULATION INHIBITOR)/FACTOR X (STUART PROWER FACTOR)/FACTOR VII (PROCONVERTIN)/FACTOR I [Concomitant]
     Indication: THROMBOSIS PROPHYLAXIS

REACTIONS (1)
  - Atrial fibrillation [Unknown]
